FAERS Safety Report 5363971-5 (Version None)
Quarter: 2007Q2

REPORT INFORMATION
  Report Type: 
  Country: None (occurrence: None)
  Receive Date: 20070620
  Receipt Date: 20070608
  Transmission Date: 20071010
  Serious: Yes (Hospitalization)
  Sender: FDA-Public Use
  Company Number: FR-PFIZER INC-2007018417

PATIENT
  Sex: Male
  Weight: 95 kg

DRUGS (4)
  1. SU-011,248 [Suspect]
     Indication: RENAL CELL CARCINOMA STAGE UNSPECIFIED
     Route: 048
  2. ANTALVIC [Concomitant]
     Route: 048
  3. HEPARIN [Concomitant]
     Route: 048
     Dates: start: 20060804, end: 20070301
  4. LEVOTHYROXINE SODIUM [Concomitant]
     Route: 048
     Dates: start: 20070119

REACTIONS (1)
  - PULMONARY EMBOLISM [None]
